FAERS Safety Report 7246378-5 (Version None)
Quarter: 2011Q1

REPORT INFORMATION
  Report Type: 
  Country: None (occurrence: None)
  Receive Date: 20110126
  Receipt Date: 20110124
  Transmission Date: 20110831
  Serious: Yes (Other)
  Sender: FDA-Public Use
  Company Number: US-AMGEN-USASP2010009681

PATIENT
  Age: 74 Year
  Sex: Male

DRUGS (3)
  1. DANAZOL [Concomitant]
     Indication: IDIOPATHIC THROMBOCYTOPENIC PURPURA
     Dosage: UNK
  2. NPLATE [Suspect]
     Indication: IDIOPATHIC THROMBOCYTOPENIC PURPURA
     Dosage: UNK
     Dates: start: 20090527
  3. NPLATE [Suspect]
     Dosage: UNK
     Dates: start: 20090527, end: 20090610

REACTIONS (3)
  - HAEMATOLOGICAL MALIGNANCY [None]
  - DISEASE PROGRESSION [None]
  - DEEP VEIN THROMBOSIS [None]
